FAERS Safety Report 24213856 (Version 1)
Quarter: 2024Q3

REPORT INFORMATION
  Report Type: Spontaneous
  Country: SG (occurrence: SG)
  Receive Date: 20240815
  Receipt Date: 20240815
  Transmission Date: 20241016
  Serious: Yes (Hospitalization)
  Sender: JOURNEY MEDICAL CORPORATION
  Company Number: SG-JOURNEY MEDICAL CORPORATION-2024JNY00179

PATIENT
  Age: 71 Year
  Sex: Female

DRUGS (2)
  1. MINOCYCLINE [Suspect]
     Active Substance: MINOCYCLINE HYDROCHLORIDE
     Indication: Lichenoid keratosis
     Dosage: 100 MG, DAILY
     Route: 048
  2. UNSPECIFIED INGREDIENT [Concomitant]
     Active Substance: UNSPECIFIED INGREDIENT

REACTIONS (4)
  - Posterior reversible encephalopathy syndrome [Recovered/Resolved]
  - Drug reaction with eosinophilia and systemic symptoms [Recovered/Resolved]
  - Acute kidney injury [Recovered/Resolved]
  - Hepatic enzyme abnormal [Recovered/Resolved]
